FAERS Safety Report 20713429 (Version 1)
Quarter: 2022Q2

REPORT INFORMATION
  Report Type: Report from Study
  Country: DE (occurrence: DE)
  Receive Date: 20220415
  Receipt Date: 20220415
  Transmission Date: 20220721
  Serious: Yes (Other)
  Sender: FDA-Public Use
  Company Number: DE-AMGEN-DEUSL2021199517

PATIENT
  Sex: Female

DRUGS (1)
  1. ADALIMUMAB [Suspect]
     Active Substance: ADALIMUMAB
     Indication: Crohn^s disease
     Dosage: UNK UNK, Q2WK
     Route: 065
     Dates: start: 2021, end: 20220405

REACTIONS (8)
  - Benign soft tissue neoplasm [Unknown]
  - Inflammatory bowel disease [Unknown]
  - Rhinorrhoea [Recovered/Resolved]
  - Cough [Recovered/Resolved]
  - Nasopharyngitis [Recovered/Resolved]
  - Alopecia [Unknown]
  - Onychoclasis [Unknown]
  - Pulpitis dental [Unknown]

NARRATIVE: CASE EVENT DATE: 20210101
